FAERS Safety Report 13992893 (Version 1)
Quarter: 2017Q3

REPORT INFORMATION
  Report Type: Spontaneous
  Country: GR (occurrence: GR)
  Receive Date: 20170920
  Receipt Date: 20170920
  Transmission Date: 20171128
  Serious: Yes (Other)
  Sender: FDA-Public Use
  Company Number: GR-MYLANLABS-2017M1057053

PATIENT
  Age: 16 Year
  Sex: Female
  Weight: 47 kg

DRUGS (1)
  1. KLARICID [Suspect]
     Active Substance: CLARITHROMYCIN
     Indication: ACNE
     Dosage: 500 MG, BID
     Route: 048
     Dates: start: 20150415, end: 20150426

REACTIONS (11)
  - Chest discomfort [Recovered/Resolved]
  - Anxiety [Not Recovered/Not Resolved]
  - Disturbance in attention [Not Recovered/Not Resolved]
  - Dyspnoea [Recovered/Resolved]
  - Confusional state [Not Recovered/Not Resolved]
  - Retching [Recovered/Resolved]
  - Tremor [Not Recovered/Not Resolved]
  - Abnormal behaviour [Recovering/Resolving]
  - Tension [Recovering/Resolving]
  - Insomnia [Recovering/Resolving]
  - Crying [Recovering/Resolving]

NARRATIVE: CASE EVENT DATE: 20150415
